FAERS Safety Report 13716783 (Version 1)
Quarter: 2017Q3

REPORT INFORMATION
  Report Type: Spontaneous
  Country: US (occurrence: US)
  Receive Date: 20170705
  Receipt Date: 20170705
  Transmission Date: 20171127
  Serious: No
  Sender: FDA-Public Use
  Company Number: US-TEVA-772364ACC

PATIENT
  Sex: Male

DRUGS (3)
  1. BUPROPION EXTENDED RELEASE XL [Suspect]
     Active Substance: BUPROPION
     Indication: NEGATIVE THOUGHTS
  2. BUPROPION EXTENDED RELEASE XL [Suspect]
     Active Substance: BUPROPION
     Indication: DEPRESSION
     Dates: start: 201601
  3. BUPROPION EXTENDED RELEASE XL [Suspect]
     Active Substance: BUPROPION

REACTIONS (3)
  - Feeling abnormal [Unknown]
  - Product use issue [Unknown]
  - Drug ineffective [Unknown]
